FAERS Safety Report 4388572-7 (Version None)
Quarter: 2004Q2

REPORT INFORMATION
  Report Type: 
  Country: None (occurrence: None)
  Receive Date: 20040628
  Receipt Date: 20040618
  Transmission Date: 20050107
  Serious: Yes (Hospitalization)
  Sender: FDA-Public Use
  Company Number: 2004030660

PATIENT
  Age: 39 Year
  Sex: Male

DRUGS (3)
  1. DRAMAMINE-D TAB [Suspect]
     Indication: DEPENDENCE
     Dosage: 2 BOXES QD TO ONGOING DOSE DECREASE, ORAL
     Route: 048
  2. CODEINE CAMSILATE (CODEINE CAMSILATE) [Suspect]
     Indication: DEPENDENCE
     Dates: end: 20040401
  3. ZUCLOPENTHIXOL DECANOATE [Concomitant]

REACTIONS (3)
  - DEPENDENCE [None]
  - EXTRAPYRAMIDAL DISORDER [None]
  - HEPATIC FAILURE [None]
